FAERS Safety Report 9086578 (Version 1)
Quarter: 2013Q1

REPORT INFORMATION
  Report Type: Spontaneous
  Country: US (occurrence: US)
  Receive Date: 20130131
  Receipt Date: 20130131
  Transmission Date: 20140127
  Serious: Yes (Other)
  Sender: FDA-Public Use
  Company Number: US-SANOFI-AVENTIS-2013SA007765

PATIENT
  Sex: Male

DRUGS (2)
  1. LANTUS [Suspect]
     Indication: TYPE 1 DIABETES MELLITUS
     Dosage: DOSE:70 UNIT(S)
     Route: 058
  2. AMITRIPTYLINE [Concomitant]
     Indication: DEPRESSION
     Route: 048

REACTIONS (4)
  - Rib fracture [Unknown]
  - Fall [Unknown]
  - Gastroenteritis viral [Recovered/Resolved]
  - Neuropathy peripheral [Not Recovered/Not Resolved]
